FAERS Safety Report 15196230 (Version 2)
Quarter: 2018Q3

REPORT INFORMATION
  Report Type: Spontaneous
  Country: SE (occurrence: SE)
  Receive Date: 20180725
  Receipt Date: 20180815
  Transmission Date: 20181010
  Serious: Yes (Other)
  Sender: FDA-Public Use
  Company Number: PHHY2018SE052017

PATIENT
  Age: 86 Year
  Sex: Female

DRUGS (1)
  1. ALLOPURINOL SANDOZ [Suspect]
     Active Substance: ALLOPURINOL
     Indication: PRODUCT USED FOR UNKNOWN INDICATION
     Dosage: 100 MG, UNK (17 TABLETS)
     Route: 065
     Dates: end: 20180725

REACTIONS (5)
  - Oral mucosal blistering [Recovered/Resolved]
  - Urinary retention [Recovered/Resolved]
  - Skin haemorrhage [Recovering/Resolving]
  - Peripheral swelling [Recovered/Resolved]
  - Rash [Recovering/Resolving]
